FAERS Safety Report 14807002 (Version 1)
Quarter: 2018Q2

REPORT INFORMATION
  Report Type: Spontaneous
  Country: US (occurrence: US)
  Receive Date: 20180425
  Receipt Date: 20180425
  Transmission Date: 20180711
  Serious: Yes (Other)
  Sender: FDA-Public Use
  Company Number: US-ROCHE-2089749

PATIENT
  Age: 55 Year
  Sex: Female
  Weight: 61.29 kg

DRUGS (14)
  1. HCTZ [Concomitant]
     Active Substance: HYDROCHLOROTHIAZIDE
  2. TURMERIC WITH BIOPERINE [Concomitant]
  3. VITAMIN D3 [Concomitant]
     Active Substance: CHOLECALCIFEROL
  4. FLUOXETINE [Concomitant]
     Active Substance: FLUOXETINE HYDROCHLORIDE
  5. AVONEX [Concomitant]
     Active Substance: INTERFERON BETA-1A
  6. VITAMIN E [Concomitant]
     Active Substance: .ALPHA.-TOCOPHEROL
  7. AMPYRA [Suspect]
     Active Substance: DALFAMPRIDINE
     Indication: GAIT DISTURBANCE
     Dosage: ONGOING
     Route: 048
  8. AMPYRA [Suspect]
     Active Substance: DALFAMPRIDINE
     Route: 048
     Dates: start: 20180214
  9. OCREVUS [Suspect]
     Active Substance: OCRELIZUMAB
     Route: 065
     Dates: start: 20171215
  10. OCREVUS [Suspect]
     Active Substance: OCRELIZUMAB
     Indication: MULTIPLE SCLEROSIS
     Dosage: UNKNOWN
     Route: 065
     Dates: start: 201712
  11. TENORMIN [Concomitant]
     Active Substance: ATENOLOL
  12. BIOTIN [Concomitant]
     Active Substance: BIOTIN
  13. WELLBUTRIN [Concomitant]
     Active Substance: BUPROPION HYDROCHLORIDE
  14. TYSABRI [Concomitant]
     Active Substance: NATALIZUMAB

REACTIONS (19)
  - Concussion [Unknown]
  - Back injury [Unknown]
  - Migraine [Unknown]
  - Fatigue [Recovered/Resolved]
  - Nuclear magnetic resonance imaging abnormal [Unknown]
  - Road traffic accident [Unknown]
  - Throat irritation [Unknown]
  - Dizziness [Unknown]
  - Eye pruritus [Unknown]
  - Back pain [Unknown]
  - Skin abrasion [Not Recovered/Not Resolved]
  - Cerebral atrophy [Unknown]
  - Fall [Unknown]
  - Hyperhidrosis [Recovered/Resolved]
  - Abdominal pain upper [Not Recovered/Not Resolved]
  - Vomiting [Unknown]
  - Ear pruritus [Unknown]
  - Feeding disorder [Unknown]
  - Memory impairment [Unknown]

NARRATIVE: CASE EVENT DATE: 201712
